FAERS Safety Report 7210086-7 (Version None)
Quarter: 2011Q1

REPORT INFORMATION
  Report Type: 
  Country: None (occurrence: None)
  Receive Date: 20110105
  Receipt Date: 20101220
  Transmission Date: 20110831
  Serious: Yes (Other)
  Sender: FDA-Public Use
  Company Number: US-BAYER-2011-000599

PATIENT
  Sex: Female

DRUGS (1)
  1. MIRENA [Suspect]
     Indication: CONTRACEPTION
     Dosage: 20 MCG/24HR, CONTINUOUS
     Dates: start: 20100501, end: 20101220

REACTIONS (2)
  - PELVIC INFLAMMATORY DISEASE [None]
  - ABDOMINAL PAIN [None]
